FAERS Safety Report 21908065 (Version 3)
Quarter: 2023Q1

REPORT INFORMATION
  Report Type: Spontaneous
  Country: US (occurrence: US)
  Receive Date: 20230125
  Receipt Date: 20230222
  Transmission Date: 20230418
  Serious: No
  Sender: FDA-Public Use
  Company Number: US-PFIZER INC-PV202200119200

PATIENT
  Age: 12 Year
  Sex: Male
  Weight: 32.7 kg

DRUGS (2)
  1. GENOTROPIN [Suspect]
     Active Substance: SOMATROPIN
     Indication: Growth hormone deficiency
     Dosage: 1.5 MG 6 DAYS A WEEK
  2. GENOTROPIN [Suspect]
     Active Substance: SOMATROPIN
     Dosage: 1.4 OR 1.6 MG, DAILY, 6 DAYS A WEEK
     Route: 058

REACTIONS (3)
  - Product prescribing error [Unknown]
  - Device use error [Unknown]
  - Drug dose omission by device [Unknown]
